FAERS Safety Report 13499607 (Version 1)
Quarter: 2017Q2

REPORT INFORMATION
  Report Type: Report from Study
  Country: CH (occurrence: CH)
  Receive Date: 20170501
  Receipt Date: 20170501
  Transmission Date: 20170830
  Serious: Yes (Hospitalization)
  Sender: FDA-Public Use
  Company Number: CH-MEDAC PHARMA, INC.-2020034

PATIENT
  Age: 55 Year
  Sex: Male
  Weight: 135 kg

DRUGS (10)
  1. TERAZOSIN HYDROCHLORIDE. [Concomitant]
     Active Substance: TERAZOSIN HYDROCHLORIDE
  2. BISOPROLOL FUMARATE. [Concomitant]
     Active Substance: BISOPROLOL FUMARATE
  3. METFORMIN [Concomitant]
     Active Substance: METFORMIN HYDROCHLORIDE
  4. METOJECT [Suspect]
     Active Substance: METHOTREXATE SODIUM
     Indication: PSORIASIS
     Route: 058
     Dates: start: 20120831
  5. TORSEMIDE. [Concomitant]
     Active Substance: TORSEMIDE
  6. ALLOPURINOL. [Concomitant]
     Active Substance: ALLOPURINOL
  7. HYDROCHLOROTHIAZIDE. [Concomitant]
     Active Substance: HYDROCHLOROTHIAZIDE
  8. VALSARTAN. [Concomitant]
     Active Substance: VALSARTAN
  9. ASPIRIN. [Concomitant]
     Active Substance: ASPIRIN
  10. LEVOTHYROXINE SODIUM. [Concomitant]
     Active Substance: LEVOTHYROXINE SODIUM

REACTIONS (4)
  - Localised infection [Unknown]
  - Impaired healing [Not Recovered/Not Resolved]
  - Cellulitis [Unknown]
  - Pyogenic granuloma [Not Recovered/Not Resolved]

NARRATIVE: CASE EVENT DATE: 20130506
